FAERS Safety Report 23732067 (Version 1)
Quarter: 2024Q2

REPORT INFORMATION
  Report Type: Spontaneous
  Country: CN (occurrence: CN)
  Receive Date: 20240411
  Receipt Date: 20240411
  Transmission Date: 20240716
  Serious: Yes (Other)
  Sender: FDA-Public Use
  Company Number: CN-BIOVITRUM-2024-CN-005382

PATIENT
  Age: 78 Year
  Sex: Female

DRUGS (3)
  1. AVATROMBOPAG [Suspect]
     Active Substance: AVATROMBOPAG
     Indication: Aplastic anaemia
     Dosage: DAILY
  2. CYCLOSPORINE [Suspect]
     Active Substance: CYCLOSPORINE
     Indication: Aplastic anaemia
     Dosage: 3 MG/KG/D WITH ADJUSTED CONCENTRATION OF 150 TO 250 NG/ML
  3. ANTI-HUMAN T LYMPHOCYTE PORCINE IMMUNOGLOBULIN [Suspect]
     Active Substance: ANTI-HUMAN T LYMPHOCYTE PORCINE IMMUNOGLOBULIN
     Indication: Aplastic anaemia
     Dosage: 20 MG/KG/D FOR FIVE DAYS

REACTIONS (6)
  - Cardiac failure [Unknown]
  - Infection [Unknown]
  - Electrolyte imbalance [Unknown]
  - Liver function test abnormal [Unknown]
  - Ill-defined disorder [Unknown]
  - Off label use [Unknown]
